FAERS Safety Report 6763980-5 (Version None)
Quarter: 2010Q2

REPORT INFORMATION
  Report Type: 
  Country: None (occurrence: None)
  Receive Date: 20100610
  Receipt Date: 20100603
  Transmission Date: 20101027
  Serious: Yes (Life-Threatening)
  Sender: FDA-Public Use
  Company Number: JP-JNJFOC-20100602857

PATIENT
  Age: 74 Year
  Sex: Female

DRUGS (3)
  1. LOPEMIN [Suspect]
     Indication: DIARRHOEA
     Route: 048
  2. CAMPTOSAR [Suspect]
     Indication: OVARIAN CANCER
     Dosage: 100MG/M2, CYCLIC
     Route: 042
  3. MITOMYCIN [Concomitant]
     Route: 065

REACTIONS (6)
  - HEPATIC ENZYME INCREASED [None]
  - ILEUS [None]
  - ILEUS PARALYTIC [None]
  - PYREXIA [None]
  - SMALL INTESTINAL PERFORATION [None]
  - WHITE BLOOD CELL COUNT INCREASED [None]
